FAERS Safety Report 7356110-2 (Version None)
Quarter: 2011Q1

REPORT INFORMATION
  Report Type: 
  Country: None (occurrence: None)
  Receive Date: 20110316
  Receipt Date: 20110222
  Transmission Date: 20110831
  Serious: Yes (Hospitalization, Other)
  Sender: FDA-Public Use
  Company Number: US-BAYER-201039479NA

PATIENT
  Sex: Female
  Weight: 56.689 kg

DRUGS (7)
  1. YAZ [Suspect]
     Indication: ORAL CONTRACEPTION
     Dosage: UNK
     Dates: start: 20041103, end: 20091119
  2. TOPAMAX [Concomitant]
     Indication: MIGRAINE
  3. YASMIN [Suspect]
     Indication: PREMENSTRUAL SYNDROME
     Dosage: UNK
     Dates: start: 20041103, end: 20091119
  4. YASMIN [Suspect]
     Indication: ORAL CONTRACEPTION
     Route: 048
     Dates: start: 20041101
  5. YAZ [Suspect]
     Indication: PREMENSTRUAL SYNDROME
  6. MULTI-VITAMIN [Concomitant]
     Dosage: UNK UNK, QD
     Route: 048
  7. UNCODEABLE ^UNCLASSIFIABLE^ [Concomitant]
     Indication: CHANGE OF BOWEL HABIT

REACTIONS (2)
  - CHOLELITHIASIS [None]
  - ABDOMINAL PAIN [None]
